FAERS Safety Report 16052437 (Version 3)
Quarter: 2020Q2

REPORT INFORMATION
  Report Type: Spontaneous
  Country: US (occurrence: US)
  Receive Date: 20190308
  Receipt Date: 20200527
  Transmission Date: 20200713
  Serious: Yes (Death, Hospitalization, Other)
  Sender: FDA-Public Use
  Company Number: US-009507513-1903USA003700

PATIENT
  Sex: Male
  Weight: 75.74 kg

DRUGS (4)
  1. JANUMET [Suspect]
     Active Substance: METFORMIN HYDROCHLORIDE\SITAGLIPTIN PHOSPHATE
     Indication: TYPE 2 DIABETES MELLITUS
     Dosage: 50MG/1000MG; DAILY
     Route: 048
     Dates: start: 20110524, end: 20161031
  2. INSULIN [Concomitant]
     Active Substance: INSULIN NOS
     Indication: TYPE 2 DIABETES MELLITUS
  3. JANUMET [Suspect]
     Active Substance: METFORMIN HYDROCHLORIDE\SITAGLIPTIN PHOSPHATE
     Dosage: 1 DOSAGE FORM,  TWICE DAILY
     Route: 048
     Dates: start: 20161031, end: 201706
  4. METFORMIN [Concomitant]
     Active Substance: METFORMIN HYDROCHLORIDE
     Indication: TYPE 2 DIABETES MELLITUS

REACTIONS (18)
  - Febrile neutropenia [Unknown]
  - Rash [Unknown]
  - Oedema peripheral [Unknown]
  - Pancreatic carcinoma metastatic [Fatal]
  - Cholecystitis [Recovered/Resolved]
  - Pyrexia [Unknown]
  - Metastases to liver [Unknown]
  - Cryptosporidiosis infection [Recovering/Resolving]
  - Diabetes mellitus inadequate control [Unknown]
  - Chills [Unknown]
  - Obesity [Not Recovered/Not Resolved]
  - Quality of life decreased [Unknown]
  - Tremor [Unknown]
  - Generalised oedema [Unknown]
  - Pulmonary mass [Unknown]
  - Night sweats [Unknown]
  - Nephrolithiasis [Not Recovered/Not Resolved]
  - Hyperglycaemia [Unknown]

NARRATIVE: CASE EVENT DATE: 201511
